FAERS Safety Report 7927116-7 (Version None)
Quarter: 2011Q4

REPORT INFORMATION
  Report Type: 
  Country: None (occurrence: None)
  Receive Date: 20111118
  Receipt Date: 20111114
  Transmission Date: 20120403
  Serious: Yes (Hospitalization, Other)
  Sender: FDA-Public Use
  Company Number: US-JNJFOC-20091007063

PATIENT
  Sex: Female
  Weight: 61.24 kg

DRUGS (14)
  1. NORCO [Concomitant]
     Route: 065
     Dates: start: 20090217
  2. OXYBUTYNIN CHLORIDE [Concomitant]
     Route: 065
  3. PROGESTERONE [Concomitant]
     Route: 065
  4. MACROBID [Concomitant]
     Route: 065
  5. TIZANIDINE HCL [Concomitant]
     Route: 065
     Dates: start: 20090203
  6. PREDNISONE [Suspect]
     Indication: ILL-DEFINED DISORDER
     Route: 065
  7. LEVOTHROID [Concomitant]
     Route: 065
  8. AZITHROMYCIN [Concomitant]
     Route: 065
     Dates: start: 20090112
  9. LEVAQUIN [Suspect]
     Indication: PNEUMONIA
     Route: 065
     Dates: start: 20080101
  10. LOMOTIL [Concomitant]
     Route: 048
     Dates: start: 20090112
  11. STEROIDS NOS [Suspect]
     Indication: ASTHMA
     Route: 048
  12. FLEXERIL [Concomitant]
     Route: 048
  13. NEURONTIN [Concomitant]
     Route: 065
     Dates: start: 20080421
  14. WELLBUTRIN SR [Concomitant]
     Route: 065

REACTIONS (6)
  - CERVICAL SPINAL STENOSIS [None]
  - JOINT INJURY [None]
  - MUSCULOSKELETAL PAIN [None]
  - INSOMNIA [None]
  - ROTATOR CUFF SYNDROME [None]
  - INTERVERTEBRAL DISC DEGENERATION [None]
